FAERS Safety Report 5219014-7 (Version None)
Quarter: 2007Q1

REPORT INFORMATION
  Report Type: 
  Country: None (occurrence: None)
  Receive Date: 20070122
  Receipt Date: 20070111
  Transmission Date: 20070707
  Serious: Yes (Hospitalization)
  Sender: FDA-Public Use
  Company Number: 233263K06USA

PATIENT
  Age: 34 Year
  Sex: Female
  Weight: 71.6683 kg

DRUGS (5)
  1. REBIF [Suspect]
     Indication: MULTIPLE SCLEROSIS
     Dosage: 8.8 MCG, 3 IN 1 WEEKS, SUBCUTANEOUS
     Route: 058
     Dates: start: 20060417, end: 20060427
  2. AZITHROMYCIN [Suspect]
     Dosage: ORAL
     Route: 048
     Dates: start: 20060416, end: 20060417
  3. BACTRIM [Suspect]
     Dosage: 2 IN 1 DAYS, ORAL
     Route: 048
     Dates: start: 20060418, end: 20060401
  4. PREDNISONE [Suspect]
     Dosage: ORAL
     Route: 048
     Dates: start: 20060401
  5. IBUPROFEN [Concomitant]

REACTIONS (7)
  - CLOSTRIDIAL INFECTION [None]
  - DEHYDRATION [None]
  - DRUG HYPERSENSITIVITY [None]
  - DYSPHAGIA [None]
  - EYE SWELLING [None]
  - HEPATIC ENZYME INCREASED [None]
  - STEVENS-JOHNSON SYNDROME [None]
